FAERS Safety Report 8504874-4 (Version None)
Quarter: 2012Q2

REPORT INFORMATION
  Report Type: 
  Country: None (occurrence: None)
  Receive Date: 20120405
  Receipt Date: 20100817
  Transmission Date: 20120825
  Serious: Yes (Hospitalization)
  Sender: FDA-Public Use
  Company Number: PHHY2010US53522

PATIENT
  Age: 79 Year
  Sex: Female
  Weight: 79 kg

DRUGS (2)
  1. RECLAST [Suspect]
     Indication: OSTEOPOROSIS
     Dosage: 5 MG /100 ML, ONCE PER YEAR, INTRAVENOUS
     Route: 042
     Dates: start: 20100809
  2. CIPRO [Concomitant]

REACTIONS (3)
  - PYREXIA [None]
  - MYALGIA [None]
  - ASTHENIA [None]
